FAERS Safety Report 18556791 (Version 12)
Quarter: 2024Q4

REPORT INFORMATION
  Report Type: Report from Study
  Country: MX (occurrence: MX)
  Receive Date: 20201128
  Receipt Date: 20241215
  Transmission Date: 20250114
  Serious: Yes (Other)
  Sender: NOVARTIS
  Company Number: MX-NOVARTISPH-NVSC2020MX316913

PATIENT
  Age: 40 Year
  Sex: Female
  Weight: 72 kg

DRUGS (13)
  1. GILENYA [Suspect]
     Active Substance: FINGOLIMOD HYDROCHLORIDE
     Indication: Multiple sclerosis
     Dosage: 0.5 MG, QD
     Route: 048
     Dates: start: 201806
  2. GILENYA [Suspect]
     Active Substance: FINGOLIMOD HYDROCHLORIDE
     Dosage: 0.5 MG, QD
     Route: 048
     Dates: start: 20201107, end: 2022
  3. GILENYA [Suspect]
     Active Substance: FINGOLIMOD HYDROCHLORIDE
     Dosage: 0.5 MG, UNKNOWN
     Route: 048
     Dates: start: 2021
  4. GILENYA [Suspect]
     Active Substance: FINGOLIMOD HYDROCHLORIDE
     Dosage: 0.5 MG, QD
     Route: 048
  5. GILENYA [Suspect]
     Active Substance: FINGOLIMOD HYDROCHLORIDE
     Dosage: 0.5 MG, QD
     Route: 048
     Dates: start: 2022
  6. GILENYA [Suspect]
     Active Substance: FINGOLIMOD HYDROCHLORIDE
     Dosage: 0.5 MG, QD
     Route: 048
     Dates: start: 20220215
  7. GILENYA [Suspect]
     Active Substance: FINGOLIMOD HYDROCHLORIDE
     Dosage: 0.5 MG, QD
     Route: 048
     Dates: start: 202302
  8. FLUPENTIXOL [Concomitant]
     Active Substance: FLUPENTIXOL
     Indication: Schizophrenia
     Dosage: 20 MG (SOLUTION)
     Route: 030
     Dates: start: 2017
  9. HALOPERIDOL [Concomitant]
     Active Substance: HALOPERIDOL
     Indication: Schizophrenia
     Dosage: 1 DOSAGE FORM, QMO
     Route: 030
     Dates: start: 2018
  10. OLANZAPINE [Concomitant]
     Active Substance: OLANZAPINE
     Indication: Schizophrenia
     Dosage: 10 MG, Q12H
     Route: 048
     Dates: start: 2018
  11. PREGABALIN [Concomitant]
     Active Substance: PREGABALIN
     Indication: Schizophrenia
     Dosage: 75 MG (1 IN THE MORNING AND 2 AT NIGHT)
     Route: 048
     Dates: start: 2018
  12. BIPERIDEN [Concomitant]
     Active Substance: BIPERIDEN
     Indication: Prophylaxis
     Dosage: UNK
     Route: 048
     Dates: start: 2018, end: 202111
  13. BIPERIDEN [Concomitant]
     Active Substance: BIPERIDEN
     Indication: Schizophrenia

REACTIONS (32)
  - Cachexia [Recovered/Resolved]
  - Joint stiffness [Recovered/Resolved]
  - Multiple sclerosis relapse [Recovering/Resolving]
  - Arthralgia [Unknown]
  - Dizziness [Not Recovered/Not Resolved]
  - Visual impairment [Not Recovered/Not Resolved]
  - Gait disturbance [Unknown]
  - Coordination abnormal [Unknown]
  - Peripheral nerve injury [Not Recovered/Not Resolved]
  - Neuropathy peripheral [Unknown]
  - Joint destruction [Not Recovered/Not Resolved]
  - Tremor [Recovering/Resolving]
  - Disturbance in attention [Not Recovered/Not Resolved]
  - Tic [Unknown]
  - Constipation [Unknown]
  - Feeling abnormal [Unknown]
  - Depression [Recovered/Resolved]
  - Blood cholesterol increased [Unknown]
  - Joint injury [Not Recovered/Not Resolved]
  - Asthenia [Unknown]
  - Ocular hyperaemia [Recovered/Resolved]
  - Tendon disorder [Not Recovered/Not Resolved]
  - Nerve injury [Not Recovered/Not Resolved]
  - Malaise [Recovering/Resolving]
  - Weight decreased [Recovered/Resolved]
  - Hypoacusis [Recovered/Resolved]
  - Weight increased [Recovered/Resolved]
  - Fall [Recovered/Resolved]
  - Wound [Recovered/Resolved]
  - Grip strength decreased [Not Recovered/Not Resolved]
  - Eating disorder [Recovered/Resolved]
  - Drug ineffective [Unknown]

NARRATIVE: CASE EVENT DATE: 20180701
